FAERS Safety Report 25078129 (Version 2)
Quarter: 2025Q2

REPORT INFORMATION
  Report Type: Spontaneous
  Country: US (occurrence: US)
  Receive Date: 20250314
  Receipt Date: 20250614
  Transmission Date: 20250716
  Serious: Yes (Hospitalization)
  Sender: ROCHE
  Company Number: US-ROCHE-10000228999

PATIENT
  Sex: Female

DRUGS (2)
  1. AVASTIN [Suspect]
     Active Substance: BEVACIZUMAB
     Indication: Anal cancer
     Route: 042
     Dates: start: 202502
  2. LONSURF [Concomitant]
     Active Substance: TIPIRACIL HYDROCHLORIDE\TRIFLURIDINE
     Indication: Anal cancer
     Dosage: ON DAY 1-5, AND 8-12 OF A 28 DAY CYCLE

REACTIONS (2)
  - Off label use [Unknown]
  - Cerebrovascular accident [Unknown]
